FAERS Safety Report 5710856-8 (Version None)
Quarter: 2008Q2

REPORT INFORMATION
  Report Type: 
  Country: None (occurrence: None)
  Receive Date: 20080415
  Receipt Date: 20080404
  Transmission Date: 20081010
  Serious: Yes (Other)
  Sender: FDA-Public Use
  Company Number: 2008-01198

PATIENT
  Sex: Female

DRUGS (1)
  1. VELCADE [Suspect]
     Indication: DRUG USE FOR UNKNOWN INDICATION

REACTIONS (2)
  - HERPES ZOSTER [None]
  - PNEUMOCYSTIS JIROVECI PNEUMONIA [None]
